FAERS Safety Report 20019099 (Version 1)
Quarter: 2021Q4

REPORT INFORMATION
  Report Type: Other
  Country: IT (occurrence: None)
  Receive Date: 20211101
  Receipt Date: 20211101
  Transmission Date: 20220303
  Serious: Yes (Hospitalization)
  Sender: FDA-Public Use
  Company Number: IT-ROCHE-2945245

PATIENT
  Age: 53 Year
  Sex: Female

DRUGS (2)
  1. RITUXIMAB [Suspect]
     Active Substance: RITUXIMAB
     Indication: Follicular lymphoma
     Route: 065
  2. PFIZER-BIONTECH COVID-19 VACCINE [Concomitant]
     Active Substance: TOZINAMERAN
     Dosage: FIRST DOSE ON 04/MAR/2021 AND SECOND DOSE ON 26/MAR/2021

REACTIONS (2)
  - COVID-19 pneumonia [Recovered/Resolved]
  - Vaccination failure [Unknown]

NARRATIVE: CASE EVENT DATE: 20210428
